FAERS Safety Report 8322735-0 (Version None)
Quarter: 2012Q2

REPORT INFORMATION
  Report Type: 
  Country: None (occurrence: None)
  Receive Date: 20120426
  Receipt Date: 20120413
  Transmission Date: 20120825
  Serious: Yes (Death, Other)
  Sender: FDA-Public Use
  Company Number: ENTC2012-0169

PATIENT
  Age: 89 Year
  Sex: Female

DRUGS (1)
  1. STALEVO 100 [Suspect]
     Dosage: 100 MG, UNKNOWN

REACTIONS (3)
  - BACK INJURY [None]
  - SPINAL FRACTURE [None]
  - FALL [None]
